FAERS Safety Report 9596275 (Version 2)
Quarter: 2013Q4

REPORT INFORMATION
  Report Type: Spontaneous
  Country: PL (occurrence: PL)
  Receive Date: 20131004
  Receipt Date: 20131004
  Transmission Date: 20140711
  Serious: Yes (Death)
  Sender: FDA-Public Use
  Company Number: PL-BAXTER-2013BAX036509

PATIENT
  Age: 53 Year
  Sex: Male

DRUGS (9)
  1. CIPROFLOXACIN REDIBAG 2 MG/ML [Suspect]
     Indication: SKIN LESION
     Route: 065
  2. CIPROFLOXACIN REDIBAG 2 MG/ML [Suspect]
     Indication: MALIGNANT MELANOMA
     Route: 065
  3. CARBOPLATIN [Suspect]
     Indication: SQUAMOUS CELL CARCINOMA
     Route: 065
  4. CISPLATIN [Suspect]
     Indication: SQUAMOUS CELL CARCINOMA
     Route: 065
  5. PACLITAXEL [Suspect]
     Indication: SQUAMOUS CELL CARCINOMA
     Route: 065
  6. FLOUROURACIL [Suspect]
     Indication: SQUAMOUS CELL CARCINOMA
     Route: 065
  7. METRONIDAZOLE [Concomitant]
     Indication: SKIN LESION
     Route: 065
  8. CEFTRIAXONE [Concomitant]
     Indication: SKIN LESION
  9. TERBINAFINE [Concomitant]
     Indication: STAPHYLOCOCCAL INFECTION

REACTIONS (1)
  - Squamous cell carcinoma [Fatal]
